FAERS Safety Report 13634540 (Version 2)
Quarter: 2018Q1

REPORT INFORMATION
  Report Type: Report from Study
  Country: None (occurrence: BR)
  Receive Date: 20170609
  Receipt Date: 20180116
  Transmission Date: 20180508
  Serious: Yes (Other)
  Sender: FDA-Public Use
  Company Number: BR-ABBVIE-17K-020-2000747-00

PATIENT
  Sex: Male
  Weight: 98 kg

DRUGS (2)
  1. HUMIRA [Suspect]
     Active Substance: ADALIMUMAB
     Indication: PSORIASIS
  2. HUMIRA [Suspect]
     Active Substance: ADALIMUMAB
     Indication: PSORIATIC ARTHROPATHY
     Route: 058
     Dates: start: 20160420

REACTIONS (6)
  - Skin exfoliation [Unknown]
  - Cardiac disorder [Recovered/Resolved]
  - Coronary artery occlusion [Unknown]
  - Hypertension [Not Recovered/Not Resolved]
  - Wound secretion [Unknown]
  - Drug hypersensitivity [Unknown]

NARRATIVE: CASE EVENT DATE: 2017
